FAERS Safety Report 19857132 (Version 1)
Quarter: 2021Q3

REPORT INFORMATION
  Report Type: Spontaneous
  Country: US (occurrence: US)
  Receive Date: 20210920
  Receipt Date: 20210920
  Transmission Date: 20211014
  Serious: No
  Sender: FDA-Public Use
  Company Number: US-AMGEN-USASP2021143370

PATIENT
  Sex: Female

DRUGS (7)
  1. ENBREL [Suspect]
     Active Substance: ETANERCEPT
     Indication: RHEUMATOID ARTHRITIS
     Dosage: 50 MILLIGRAM, QWK
     Route: 058
  2. PROCTOZONE HC [Concomitant]
     Active Substance: HYDROCORTISONE
     Dosage: UNK
  3. HYDROCORTISONE. [Concomitant]
     Active Substance: HYDROCORTISONE
     Dosage: UNK
  4. ZOLEDRONIC ACID [Concomitant]
     Active Substance: ZOLEDRONIC ACID
     Dosage: UNK
  5. MELOXICAM. [Concomitant]
     Active Substance: MELOXICAM
     Dosage: 7.5 MILLIGRAM
  6. PRAVASTATIN SODIUM. [Concomitant]
     Active Substance: PRAVASTATIN SODIUM
     Dosage: UNK
  7. CHANTIX [Concomitant]
     Active Substance: VARENICLINE TARTRATE
     Dosage: 1 MILLIGRAM

REACTIONS (1)
  - Drug ineffective [Unknown]
